FAERS Safety Report 19067751 (Version 1)
Quarter: 2021Q1

REPORT INFORMATION
  Report Type: Spontaneous
  Country: SI (occurrence: SI)
  Receive Date: 20210329
  Receipt Date: 20210329
  Transmission Date: 20210420
  Serious: Yes (Death, Hospitalization, Other)
  Sender: FDA-Public Use
  Company Number: SI-PFIZER INC-2021324219

PATIENT
  Age: 45 Year
  Sex: Female

DRUGS (8)
  1. PACLITAXEL. [Suspect]
     Active Substance: PACLITAXEL
     Indication: BREAST CANCER METASTATIC
     Dosage: 1ST LINE
  2. CAPECITABINE. [Suspect]
     Active Substance: CAPECITABINE
     Dosage: 3RD LINE, 1000MG/M2
     Dates: start: 20190626
  3. TRASTUZUMAB. [Suspect]
     Active Substance: TRASTUZUMAB
     Indication: BREAST CANCER METASTATIC
     Dosage: UNK
     Dates: end: 201603
  4. DOCETAXEL. [Suspect]
     Active Substance: DOCETAXEL
     Indication: BREAST CANCER METASTATIC
     Dosage: UNK
     Dates: end: 201603
  5. TRASTUZUMAB. [Suspect]
     Active Substance: TRASTUZUMAB
     Dosage: UNK
  6. PERTUZUMAB. [Suspect]
     Active Substance: PERTUZUMAB
     Indication: BREAST CANCER METASTATIC
     Dosage: 1ST LINE
  7. DOCETAXEL. [Suspect]
     Active Substance: DOCETAXEL
     Dosage: 1ST LINE
     Dates: start: 2018
  8. DOCETAXEL. [Suspect]
     Active Substance: DOCETAXEL
     Dosage: 3RD LINE
     Dates: start: 201905

REACTIONS (6)
  - Neoplasm progression [Not Recovered/Not Resolved]
  - Diarrhoea [Unknown]
  - Epilepsy [Unknown]
  - Paronychia [Unknown]
  - Cough [Unknown]
  - Laryngeal oedema [Not Recovered/Not Resolved]

NARRATIVE: CASE EVENT DATE: 201810
